FAERS Safety Report 11629054 (Version 1)
Quarter: 2015Q4

REPORT INFORMATION
  Report Type: Spontaneous
  Country: US (occurrence: US)
  Receive Date: 20151014
  Receipt Date: 20151014
  Transmission Date: 20160304
  Serious: No
  Sender: FDA-Public Use
  Company Number: US-UNIQUE PHARMACEUTICAL LABORATORIES-2015PAC00022

PATIENT
  Age: 67 Year
  Sex: Male
  Weight: 111.11 kg

DRUGS (1)
  1. CETIRIZINE HYDROCHLORIDE. [Suspect]
     Active Substance: CETIRIZINE HYDROCHLORIDE
     Indication: UPPER-AIRWAY COUGH SYNDROME
     Dosage: 10 MG, 1X/DAY
     Route: 048
     Dates: start: 201501

REACTIONS (1)
  - Drug ineffective [Unknown]

NARRATIVE: CASE EVENT DATE: 201501
